FAERS Safety Report 9728835 (Version 1)
Quarter: 2013Q4

REPORT INFORMATION
  Report Type: Spontaneous
  Country: US (occurrence: US)
  Receive Date: 20131204
  Receipt Date: 20131204
  Transmission Date: 20140711
  Serious: No
  Sender: FDA-Public Use
  Company Number: US-BIOGENIDEC-2013BI097091

PATIENT
  Age: 38 Year
  Sex: Female
  Weight: 65 kg

DRUGS (7)
  1. TECFIDERA [Suspect]
     Indication: MULTIPLE SCLEROSIS
     Route: 048
     Dates: start: 20130624
  2. BUSPIRONE [Concomitant]
  3. GABAPENTIN [Concomitant]
  4. LORAZEPAM [Concomitant]
  5. VITAMIN D [Concomitant]
  6. BENADRYL [Concomitant]
  7. LEXAPRO [Concomitant]

REACTIONS (5)
  - Bladder disorder [Recovered/Resolved]
  - Urinary tract infection [Recovered/Resolved]
  - Vulvovaginal mycotic infection [Recovered/Resolved]
  - Otitis externa [Recovered/Resolved]
  - Lymphocyte count decreased [Recovered/Resolved]
